FAERS Safety Report 4386256-2 (Version None)
Quarter: 2004Q2

REPORT INFORMATION
  Report Type: 
  Country: None (occurrence: None)
  Receive Date: 20040628
  Receipt Date: 20040628
  Transmission Date: 20050107
  Serious: Yes (Hospitalization)
  Sender: FDA-Public Use
  Company Number: None

PATIENT
  Age: 52 Year
  Sex: Male
  Weight: 90.7194 kg

DRUGS (9)
  1. GATIFLOXACIN [Suspect]
     Indication: BRONCHITIS
     Dosage: 400 MG PO
     Route: 048
     Dates: start: 20040331, end: 20040407
  2. PREDNISONE [Concomitant]
  3. ZANTAC [Concomitant]
  4. RISPERIDONE [Concomitant]
  5. VPA [Concomitant]
  6. WARFARIN SODIUM [Concomitant]
  7. VIOXX [Concomitant]
  8. ARTANE [Concomitant]
  9. DITROPAN [Concomitant]

REACTIONS (5)
  - CLOSTRIDIUM COLITIS [None]
  - DRUG INEFFECTIVE [None]
  - HYPOTENSION [None]
  - PNEUMONIA [None]
  - STAPHYLOCOCCAL BACTERAEMIA [None]
